FAERS Safety Report 5915445-8 (Version None)
Quarter: 2008Q4

REPORT INFORMATION
  Report Type: 
  Country: None (occurrence: None)
  Receive Date: 20081010
  Receipt Date: 20080929
  Transmission Date: 20090506
  Serious: Yes (Other)
  Sender: FDA-Public Use
  Company Number: GB-ELI_LILLY_AND_COMPANY-GB200810001722

PATIENT
  Age: 73 Year
  Sex: Female

DRUGS (3)
  1. CYMBALTA [Suspect]
     Indication: INCONTINENCE
     Dosage: 30 MG, 2/D
     Route: 065
     Dates: start: 20080101, end: 20080101
  2. CYMBALTA [Suspect]
     Dosage: UNK, UNKNOWN
     Route: 065
     Dates: start: 20080101
  3. METFORMIN HCL [Concomitant]
     Indication: DIABETES MELLITUS
     Dosage: UNK, UNKNOWN
     Route: 065

REACTIONS (4)
  - CHEST PAIN [None]
  - MALAISE [None]
  - NAUSEA [None]
  - VERTIGO [None]
